FAERS Safety Report 10088156 (Version 1)
Quarter: 2014Q2

REPORT INFORMATION
  Report Type: Spontaneous
  Country: US (occurrence: US)
  Receive Date: 20140421
  Receipt Date: 20140421
  Transmission Date: 20141212
  Serious: Yes (Other)
  Sender: FDA-Public Use
  Company Number: US-BIOGENIDEC-2014BI036258

PATIENT
  Age: 45 Year
  Sex: Female

DRUGS (1)
  1. AVONEX [Suspect]
     Indication: PRODUCT USED FOR UNKNOWN INDICATION
     Route: 030
     Dates: start: 1996, end: 1999

REACTIONS (6)
  - Cardiac arrest [Unknown]
  - Coma [Recovered/Resolved]
  - Renal failure [Unknown]
  - Blindness transient [Recovered/Resolved]
  - Paralysis [Recovered/Resolved]
  - Injection site scar [Unknown]
